FAERS Safety Report 6034955-9 (Version None)
Quarter: 2009Q1

REPORT INFORMATION
  Report Type: 
  Country: None (occurrence: None)
  Receive Date: 20090112
  Receipt Date: 19950125
  Transmission Date: 20090719
  Serious: No
  Sender: FDA-Public Use
  Company Number: US-ABBOTT-08P-163-0461494-00

PATIENT
  Age: 70 Year
  Sex: Male

DRUGS (1)
  1. HYTRIN CAPSULES 2MG [Suspect]
     Indication: DRUG USE FOR UNKNOWN INDICATION
     Dosage: 2 MG AT HS (BED TIME)

REACTIONS (1)
  - DYSURIA [None]
